FAERS Safety Report 16155017 (Version 1)
Quarter: 2019Q2

REPORT INFORMATION
  Report Type: Spontaneous
  Country: US (occurrence: US)
  Receive Date: 20190403
  Receipt Date: 20190403
  Transmission Date: 20190711
  Serious: Yes (Other)
  Sender: FDA-Public Use
  Company Number: US-IMPAX LABORATORIES, LLC-2018-IPXL-03986

PATIENT
  Age: 41 Year
  Sex: Female

DRUGS (1)
  1. ADRENACLICK [Suspect]
     Active Substance: EPINEPHRINE
     Indication: HAEMOSTASIS
     Dosage: UNK

REACTIONS (4)
  - Hypoxia [Recovered/Resolved]
  - Wrong product administered [Unknown]
  - Troponin increased [Recovered/Resolved]
  - Pulmonary hypertension [Recovered/Resolved]
